FAERS Safety Report 5464608-7 (Version None)
Quarter: 2007Q3

REPORT INFORMATION
  Report Type: 
  Country: None (occurrence: None)
  Receive Date: 20070921
  Receipt Date: 20070912
  Transmission Date: 20080115
  Serious: Yes (Hospitalization, Congenital Anomaly, Other)
  Sender: FDA-Public Use
  Company Number: US-ABBOTT-07P-163-0417212-00

PATIENT
  Sex: Female
  Weight: 81.72 kg

DRUGS (13)
  1. HUMIRA [Suspect]
     Indication: RHEUMATOID ARTHRITIS
     Route: 058
     Dates: start: 20070105, end: 20070131
  2. HUMIRA [Suspect]
     Route: 058
     Dates: start: 20070430, end: 20070708
  3. PRENATAL VITAMINS [Concomitant]
     Indication: PREGNANCY
     Route: 048
     Dates: start: 20070206, end: 20070904
  4. FOLIC ACID [Concomitant]
     Indication: PREGNANCY
     Route: 048
     Dates: start: 20070105, end: 20070904
  5. IRON [Concomitant]
     Indication: PREGNANCY
     Route: 048
     Dates: start: 20070206, end: 20070624
  6. IRON [Concomitant]
     Route: 048
     Dates: start: 20070625, end: 20070904
  7. COFFEE [Concomitant]
     Indication: DRUG USE FOR UNKNOWN INDICATION
     Dosage: 1 SERVING
     Route: 048
     Dates: start: 20070105, end: 20070215
  8. CAFFEINE [Concomitant]
     Indication: DRUG USE FOR UNKNOWN INDICATION
     Dosage: 3 16 OZ SODAS
     Route: 048
     Dates: start: 20070105, end: 20070215
  9. METHOTREXATE [Concomitant]
     Indication: RHEUMATOID ARTHRITIS
     Route: 048
     Dates: start: 20070105, end: 20070131
  10. ASPIRIN [Concomitant]
     Indication: CARDIAC DISORDER
     Route: 048
     Dates: start: 20070222, end: 20070904
  11. PARACETAMOL [Concomitant]
     Indication: RHEUMATOID ARTHRITIS
     Route: 048
     Dates: start: 20070208, end: 20070402
  12. GLYCERYL TRINITRATE [Concomitant]
     Indication: CHEST PAIN
     Route: 048
     Dates: start: 20070201, end: 20070904
  13. FAMOTIDINE [Concomitant]
     Indication: GASTROOESOPHAGEAL REFLUX DISEASE
     Route: 048
     Dates: start: 20070201, end: 20070904

REACTIONS (5)
  - HYPERTENSION [None]
  - KIDNEY INFECTION [None]
  - MASS [None]
  - PRE-ECLAMPSIA [None]
  - PYREXIA [None]
